FAERS Safety Report 7657235-4 (Version None)
Quarter: 2011Q3

REPORT INFORMATION
  Report Type: 
  Country: None (occurrence: None)
  Receive Date: 20110804
  Receipt Date: 20110722
  Transmission Date: 20111222
  Serious: Yes (Hospitalization)
  Sender: FDA-Public Use
  Company Number: PHHY2011IT66940

PATIENT
  Sex: Female

DRUGS (6)
  1. GLUCOBAY [Concomitant]
     Dosage: 300 MG, UNK
     Route: 048
     Dates: start: 20101116
  2. ATORVASTATIN CALCIUM [Concomitant]
     Dosage: 20 MG, UNK
  3. NEBIVOLOL HCL [Concomitant]
     Dosage: 5 MG, UNK
  4. OLMESARTAN MEDOXOMIL [Concomitant]
     Dosage: 40 MG, UNK
  5. AGGRENOX [Concomitant]
     Dosage: 450 MG, UNK
     Dates: start: 20101123
  6. TASIGNA [Suspect]
     Indication: CHRONIC MYELOID LEUKAEMIA
     Dosage: 800 MG, DAILY
     Route: 048
     Dates: start: 20100922

REACTIONS (1)
  - ACUTE MYOCARDIAL INFARCTION [None]
